FAERS Safety Report 5237397-9 (Version None)
Quarter: 2007Q1

REPORT INFORMATION
  Report Type: 
  Country: None (occurrence: None)
  Receive Date: 20070213
  Receipt Date: 20070129
  Transmission Date: 20070707
  Serious: Yes (Hospitalization)
  Sender: FDA-Public Use
  Company Number: US-SHR-US-2006-026575

PATIENT
  Age: 39 Year
  Sex: Male
  Weight: 74.83 kg

DRUGS (12)
  1. BETASERON [Suspect]
     Indication: RELAPSING-REMITTING MULTIPLE SCLEROSIS
     Dosage: 8 MIU, EVERY 2D
     Route: 058
     Dates: start: 20050201
  2. TESTIM [Concomitant]
     Dosage: 5 G, BED T.
  3. ARICEPT [Concomitant]
     Dosage: 8 MG/D, UNK
  4. TENORMIN [Concomitant]
     Indication: HYPERTENSION
     Dosage: 50 MG/D, BED T.
  5. BACLOFEN [Concomitant]
     Indication: MUSCLE SPASMS
     Dosage: 20 MG, 3X/DAY
  6. PROZAC [Concomitant]
     Indication: DEPRESSION
     Dosage: 20 MG/D, BED T.
  7. VICODIN [Concomitant]
     Indication: PAIN
     Dosage: 150 MG/D, UNK
  8. LAMICTAL [Concomitant]
     Indication: DEPRESSION
     Dosage: 400 MG/D, UNK
  9. METADATE CD [Concomitant]
     Dosage: 400 MG/D, UNK
  10. NEURONTIN [Concomitant]
     Indication: PAIN
     Dosage: 1200 MG/D, UNK
  11. PROVIGIL [Concomitant]
     Dosage: 400 MG/D, UNK
  12. ZANAFLEX [Concomitant]
     Indication: MUSCLE SPASMS
     Dosage: 8 MG/D, UNK

REACTIONS (1)
  - INJECTION SITE CELLULITIS [None]
